FAERS Safety Report 17158809 (Version 1)
Quarter: 2019Q4

REPORT INFORMATION
  Report Type: Spontaneous
  Country: IN (occurrence: IN)
  Receive Date: 20191216
  Receipt Date: 20191216
  Transmission Date: 20200122
  Serious: Yes (Hospitalization)
  Sender: FDA-Public Use
  Company Number: IN-PRAGMA PHARMACEUTICALS, LLC-2019PRG00268

PATIENT
  Age: 34 Year
  Sex: Female

DRUGS (1)
  1. CEPHALEXIN. [Suspect]
     Active Substance: CEPHALEXIN
     Indication: UPPER RESPIRATORY TRACT INFECTION
     Dosage: 500 MG, 2X/DAY
     Route: 048

REACTIONS (3)
  - Renal tubular acidosis [Recovered/Resolved]
  - Tubulointerstitial nephritis [Recovered/Resolved]
  - Familial periodic paralysis [Recovered/Resolved]
